FAERS Safety Report 7906360-9 (Version None)
Quarter: 2011Q4

REPORT INFORMATION
  Report Type: 
  Country: None (occurrence: None)
  Receive Date: 20111109
  Receipt Date: 20111109
  Transmission Date: 20120403
  Serious: Yes (Life-Threatening)
  Sender: FDA-Public Use
  Company Number: None

PATIENT
  Age: 81 Year
  Sex: Female
  Weight: 70.3075 kg

DRUGS (1)
  1. BRINZOLAMIDE (AZOPT) 1%, OPHTHALMIC SUSP [Suspect]
     Indication: GLAUCOMA
     Dosage: ONE DROP /BOTH EYES THREE TIMES DAILY EYES
     Dates: start: 20100801, end: 20110801

REACTIONS (2)
  - DYSPHONIA [None]
  - ALOPECIA [None]
